FAERS Safety Report 16917191 (Version 2)
Quarter: 2019Q4

REPORT INFORMATION
  Report Type: Spontaneous
  Country: FR (occurrence: FR)
  Receive Date: 20191015
  Receipt Date: 20191225
  Transmission Date: 20200122
  Serious: Yes (Life-Threatening)
  Sender: FDA-Public Use
  Company Number: FR-TEVA-2019-FR-1120972

PATIENT
  Age: 54 Year
  Sex: Male
  Weight: 77 kg

DRUGS (5)
  1. ESCITALOPRAM [Suspect]
     Active Substance: ESCITALOPRAM OXALATE
     Indication: TOXICITY TO VARIOUS AGENTS
     Dosage: 200 MG
     Route: 048
     Dates: start: 20190915, end: 20190915
  2. ACTISKENAN 10 MG, GELULE [Suspect]
     Active Substance: MORPHINE SULFATE
     Indication: TOXICITY TO VARIOUS AGENTS
     Dosage: 210 MG
     Route: 048
     Dates: start: 20190915, end: 20190915
  3. TOVIAZ [Suspect]
     Active Substance: FESOTERODINE FUMARATE
     Indication: TOXICITY TO VARIOUS AGENTS
     Dosage: 32 MG
     Route: 048
     Dates: start: 20190915, end: 20190915
  4. LORMETAZEPAM [Suspect]
     Active Substance: LORMETAZEPAM
     Indication: TOXICITY TO VARIOUS AGENTS
     Dosage: 3 MG
     Route: 048
     Dates: start: 20190915, end: 20190915
  5. IMOVANE [Suspect]
     Active Substance: ZOPICLONE
     Indication: TOXICITY TO VARIOUS AGENTS
     Dosage: 30 MG
     Route: 048
     Dates: start: 20190915, end: 20190915

REACTIONS (2)
  - Bradypnoea [Recovered/Resolved]
  - Coma [Recovered/Resolved]

NARRATIVE: CASE EVENT DATE: 20190915
